FAERS Safety Report 24033873 (Version 1)
Quarter: 2024Q3

REPORT INFORMATION
  Report Type: Spontaneous
  Country: US (occurrence: US)
  Receive Date: 20240701
  Receipt Date: 20240701
  Transmission Date: 20241017
  Serious: No
  Sender: Pyros Pharmaceuticals
  Company Number: US-PYROS PHARMACEUTICALS, INC-2024-PYROS-US000028

PATIENT
  Age: 0 Year
  Sex: Male
  Weight: 8.029 kg

DRUGS (3)
  1. VIGPODER [Suspect]
     Active Substance: VIGABATRIN
     Indication: Infantile spasms
     Dosage: 200 MG, BID
     Route: 048
     Dates: start: 20240529
  2. PREDNISONE [Concomitant]
     Active Substance: PREDNISONE
     Indication: Infantile spasms
     Dosage: 10 ML, BID
     Route: 048
     Dates: start: 20240523
  3. FAMOTIDINE [Concomitant]
     Active Substance: FAMOTIDINE
     Indication: Gastrooesophageal reflux disease
     Dosage: 1 ML, DAILY
     Route: 048
     Dates: start: 20240523

REACTIONS (3)
  - Restlessness [Recovered/Resolved]
  - Tension [Recovered/Resolved]
  - Crying [Recovered/Resolved]

NARRATIVE: CASE EVENT DATE: 20240529
